FAERS Safety Report 11422760 (Version 5)
Quarter: 2015Q4

REPORT INFORMATION
  Report Type: Report from Study
  Country: CA (occurrence: CA)
  Receive Date: 20150827
  Receipt Date: 20151218
  Transmission Date: 20160304
  Serious: Yes (Other)
  Sender: FDA-Public Use
  Company Number: CA-BRISTOL-MYERS SQUIBB COMPANY-BMS-2015-055578

PATIENT
  Age: 70 Year
  Sex: Male

DRUGS (3)
  1. METHOTREXATE [Concomitant]
     Active Substance: METHOTREXATE
     Indication: PRODUCT USED FOR UNKNOWN INDICATION
     Route: 065
  2. MAVIK [Concomitant]
     Active Substance: TRANDOLAPRIL
     Indication: PRODUCT USED FOR UNKNOWN INDICATION
     Route: 065
  3. ABATACEPT [Suspect]
     Active Substance: ABATACEPT
     Indication: RHEUMATOID ARTHRITIS
     Dosage: 750 MG, Q4WK
     Route: 042
     Dates: start: 20130805

REACTIONS (11)
  - Dyspnoea [Unknown]
  - Constipation [Unknown]
  - Hypotension [Unknown]
  - Nausea [Unknown]
  - Blood pressure increased [Unknown]
  - Hernia repair [Unknown]
  - Vomiting [Unknown]
  - Weight decreased [Unknown]
  - Inguinal hernia [Unknown]
  - Dizziness [Unknown]
  - Intestinal transit time decreased [Unknown]

NARRATIVE: CASE EVENT DATE: 201507
